FAERS Safety Report 5354779-5 (Version None)
Quarter: 2007Q2

REPORT INFORMATION
  Report Type: 
  Country: None (occurrence: None)
  Receive Date: 20070612
  Receipt Date: 20070601
  Transmission Date: 20071010
  Serious: Yes (Other)
  Sender: FDA-Public Use
  Company Number: GB-PFIZER INC-2007046072

PATIENT
  Age: 58 Year
  Sex: Male
  Weight: 67 kg

DRUGS (5)
  1. VIAGRA [Suspect]
     Indication: ERECTILE DYSFUNCTION
     Route: 048
  2. AMLODIPINE [Concomitant]
     Route: 048
  3. ASPIRIN [Concomitant]
     Route: 048
  4. DIPYRIDAMOLE [Concomitant]
     Route: 048
  5. SIMVASTATIN [Concomitant]
     Route: 048

REACTIONS (2)
  - BLINDNESS [None]
  - RETINAL VEIN OCCLUSION [None]
